FAERS Safety Report 14949769 (Version 1)
Quarter: 2018Q2

REPORT INFORMATION
  Report Type: Spontaneous
  Country: GR (occurrence: GR)
  Receive Date: 20180529
  Receipt Date: 20180529
  Transmission Date: 20180711
  Serious: Yes (Life-Threatening)
  Sender: FDA-Public Use
  Company Number: GR-B. BRAUN MEDICAL INC.-2048631

PATIENT
  Age: 1 Month
  Sex: Female
  Weight: .58 kg

DRUGS (15)
  1. VITALIPID/INFANTS INJ EM. INF [Suspect]
     Active Substance: ERGOCALCIFEROL\PHYTONADIONE\TOCOPHEROL\VITAMIN A PALMITATE
     Route: 042
     Dates: start: 20180408, end: 20180410
  2. BRIKLIN [Concomitant]
     Active Substance: AMIKACIN
     Route: 042
     Dates: start: 20180325, end: 20180409
  3. STERILE WATER [Suspect]
     Active Substance: WATER
     Route: 042
     Dates: start: 20180408, end: 20180410
  4. CALCIUM GLUCONATE. [Suspect]
     Active Substance: CALCIUM GLUCONATE
     Route: 042
     Dates: start: 20180408, end: 20180410
  5. DEXTROSE. [Suspect]
     Active Substance: DEXTROSE
     Route: 042
     Dates: start: 20180408, end: 20180410
  6. INTRALIPID [Suspect]
     Active Substance: EGG PHOSPHOLIPIDS\GLYCERIN\SOYBEAN OIL
     Route: 042
     Dates: start: 20180408, end: 20180410
  7. SODIUM CHLORIDE. [Suspect]
     Active Substance: SODIUM CHLORIDE
     Route: 042
     Dates: start: 20180408, end: 20180410
  8. PEDITRACE [Suspect]
     Active Substance: CUPRIC CHLORIDE\MANGANESE CHLORIDE\POTASSIUM IODIDE\SODIUM FLUORIDE\SODIUM SELENITE\ZINC CHLORIDE
     Route: 042
     Dates: start: 20180408, end: 20180410
  9. SOLUVIT N [Suspect]
     Active Substance: VITAMINS
     Route: 042
     Dates: start: 20180408, end: 20180410
  10. VAMIN INFANT [Suspect]
     Active Substance: AMINO ACIDS
     Route: 042
     Dates: start: 20180408, end: 20180410
  11. GLYCOPHOS [Suspect]
     Active Substance: SODIUM GLYCEROPHOSPHATE ANHYDROUS
     Route: 042
     Dates: start: 20180408, end: 20180410
  12. POTASSIUM CHLORIDE. [Suspect]
     Active Substance: POTASSIUM CHLORIDE
     Route: 042
     Dates: start: 20180408, end: 20180410
  13. MAGNESIUM SULFATE. [Suspect]
     Active Substance: MAGNESIUM SULFATE
     Route: 042
     Dates: start: 20180408, end: 20180410
  14. CIPROXIN [Concomitant]
     Active Substance: CIPROFLOXACIN
     Route: 042
     Dates: start: 20180325, end: 20180409
  15. YDOR INJECTABLE [Suspect]
     Active Substance: UNSPECIFIED INGREDIENT
     Route: 042
     Dates: start: 20180408, end: 20180410

REACTIONS (3)
  - Product preparation error [None]
  - Bacteraemia [None]
  - Neonatal infection [Recovered/Resolved]

NARRATIVE: CASE EVENT DATE: 20180408
